FAERS Safety Report 5819668-8 (Version None)
Quarter: 2008Q3

REPORT INFORMATION
  Report Type: 
  Country: None (occurrence: None)
  Receive Date: 20080723
  Receipt Date: 20080716
  Transmission Date: 20090109
  Serious: Yes (Hospitalization)
  Sender: FDA-Public Use
  Company Number: US-PFIZER INC-2007090671

PATIENT
  Sex: Male
  Weight: 78 kg

DRUGS (5)
  1. SOMAVERT [Suspect]
     Indication: ACROMEGALY
     Route: 058
  2. CABERGOLINE [Concomitant]
     Route: 048
  3. OMEPRAZOLE [Concomitant]
     Route: 048
     Dates: start: 20060520
  4. VALSARTAN [Concomitant]
     Route: 048
     Dates: start: 19900101
  5. DYAZIDE [Concomitant]

REACTIONS (1)
  - HYPERPARATHYROIDISM [None]
